FAERS Safety Report 5009099-5 (Version None)
Quarter: 2006Q2

REPORT INFORMATION
  Report Type: 
  Country: None (occurrence: None)
  Receive Date: 20060519
  Receipt Date: 20060509
  Transmission Date: 20061013
  Serious: Yes (Life-Threatening)
  Sender: FDA-Public Use
  Company Number: 2003JP007367

PATIENT
  Age: 63 Year
  Sex: Male
  Weight: 71 kg

DRUGS (10)
  1. PROGRAF [Suspect]
     Indication: RENAL TRANSPLANT
     Dosage: 21 MG, D, ORAL; ORAL
     Route: 048
     Dates: start: 20031101
  2. PROGRAF [Suspect]
     Indication: RENAL TRANSPLANT
     Dosage: 21 MG, D, ORAL; ORAL
     Route: 048
     Dates: start: 20031112
  3. MEDROL [Suspect]
     Indication: RENAL TRANSPLANT
     Dosage: 20 MG, D, ORAL
     Route: 048
     Dates: start: 20031115
  4. PROGRAF [Concomitant]
  5. CELLCEPT [Concomitant]
  6. SOLU-MEDROL [Concomitant]
  7. SIMULECT [Concomitant]
  8. LASIX (FUROSEMIDE) INJECTION [Concomitant]
  9. DIOVAN  NOVARTIS  (VALSARTAN) TABLET [Concomitant]
  10. HARNAL (TAMSULOSIN HYDROCHLORIDE) CAPSULE [Concomitant]

REACTIONS (4)
  - ACUTE MYOCARDIAL INFARCTION [None]
  - COMPLICATIONS OF TRANSPLANTED KIDNEY [None]
  - DIABETES MELLITUS [None]
  - GRAFT THROMBOSIS [None]
